FAERS Safety Report 25541572 (Version 1)
Quarter: 2025Q3

REPORT INFORMATION
  Report Type: Spontaneous
  Country: GB (occurrence: GB)
  Receive Date: 20250711
  Receipt Date: 20250711
  Transmission Date: 20251020
  Serious: Yes (Life-Threatening, Hospitalization, Disabling, Other)
  Sender: CELLTRION
  Company Number: None

PATIENT

DRUGS (10)
  1. USTEKINUMAB [Suspect]
     Active Substance: USTEKINUMAB
     Indication: Crohn^s disease
     Dates: start: 20241212
  2. APIXABAN [Concomitant]
     Active Substance: APIXABAN
  3. BENZYDAMINE HYDROCHLORIDE [Concomitant]
     Active Substance: BENZYDAMINE HYDROCHLORIDE
  4. CALCIUM CARBONATE\CHOLECALCIFEROL [Concomitant]
     Active Substance: CALCIUM CARBONATE\CHOLECALCIFEROL
  5. FAMOTIDINE [Concomitant]
     Active Substance: FAMOTIDINE
  6. FOLIC ACID [Concomitant]
     Active Substance: FOLIC ACID
  7. PANADOL [Concomitant]
     Active Substance: ACETAMINOPHEN
  8. BOOTS INDIGESTION [Concomitant]
  9. PREDNISOLONE [Concomitant]
     Active Substance: PREDNISOLONE
  10. URSODIOL [Concomitant]
     Active Substance: URSODIOL

REACTIONS (3)
  - Haematology test normal [Not Recovered/Not Resolved]
  - Eosinophilia [Unknown]
  - Myocardial injury [Unknown]

NARRATIVE: CASE EVENT DATE: 20250429
